FAERS Safety Report 7780643-8 (Version None)
Quarter: 2011Q3

REPORT INFORMATION
  Report Type: 
  Country: None (occurrence: None)
  Receive Date: 20110927
  Receipt Date: 20110302
  Transmission Date: 20111222
  Serious: No
  Sender: FDA-Public Use
  Company Number: US-BRISTOL-MYERS SQUIBB COMPANY-15519374

PATIENT
  Sex: Female

DRUGS (3)
  1. LOPRESSOR [Concomitant]
  2. AVAPRO [Suspect]
     Indication: HYPERTENSION
     Dates: start: 20110127, end: 20110101
  3. XANAX [Concomitant]

REACTIONS (4)
  - ABDOMINAL PAIN [None]
  - NAUSEA [None]
  - HYPERHIDROSIS [None]
  - FEELING HOT [None]
